FAERS Safety Report 8563912-3 (Version None)
Quarter: 2012Q3

REPORT INFORMATION
  Report Type: 
  Country: None (occurrence: None)
  Receive Date: 20120727
  Receipt Date: 20120727
  Transmission Date: 20120928
  Serious: Yes (Other)
  Sender: FDA-Public Use
  Company Number: None

PATIENT
  Age: 43 Year
  Sex: Female
  Weight: 48.5349 kg

DRUGS (1)
  1. MACRODANTIN [Suspect]
     Indication: INFECTION PROPHYLAXIS
     Dosage: 100MG TWICE DAILY PO
     Route: 048
     Dates: start: 20120720, end: 20120723

REACTIONS (20)
  - PALPITATIONS [None]
  - HEADACHE [None]
  - NAUSEA [None]
  - VOMITING [None]
  - HYPERHIDROSIS [None]
  - INFECTION [None]
  - NECK PAIN [None]
  - SPEECH DISORDER [None]
  - PAIN [None]
  - THROMBOSIS [None]
  - HEART RATE INCREASED [None]
  - PAIN IN EXTREMITY [None]
  - FATIGUE [None]
  - ABDOMINAL PAIN UPPER [None]
  - DIARRHOEA [None]
  - CEREBROVASCULAR ACCIDENT [None]
  - BALANCE DISORDER [None]
  - DIZZINESS [None]
  - MUSCLE TIGHTNESS [None]
  - VISUAL IMPAIRMENT [None]
